FAERS Safety Report 9455996 (Version 2)
Quarter: 2013Q3

REPORT INFORMATION
  Report Type: Report from Study
  Country: FR (occurrence: FR)
  Receive Date: 20130813
  Receipt Date: 20130821
  Transmission Date: 20140515
  Serious: Yes (Death)
  Sender: FDA-Public Use
  Company Number: FR-PFIZER INC-2013231337

PATIENT
  Sex: 0

DRUGS (1)
  1. FLUOROURACIL [Suspect]

REACTIONS (1)
  - Toxicity to various agents [Fatal]
